FAERS Safety Report 15487868 (Version 3)
Quarter: 2018Q4

REPORT INFORMATION
  Report Type: Spontaneous
  Country: JP (occurrence: JP)
  Receive Date: 20181011
  Receipt Date: 20181016
  Transmission Date: 20190205
  Serious: Yes (Other)
  Sender: FDA-Public Use
  Company Number: JP-SA-2018SA273539

PATIENT
  Age: 68 Year
  Sex: Male

DRUGS (1)
  1. JEVTANA [Suspect]
     Active Substance: CABAZITAXEL
     Indication: HORMONE-REFRACTORY PROSTATE CANCER
     Dosage: UNK
     Route: 041

REACTIONS (3)
  - Performance status decreased [Unknown]
  - Cerebral infarction [Unknown]
  - Meningitis [Unknown]
